FAERS Safety Report 4315290-3 (Version None)
Quarter: 2004Q1

REPORT INFORMATION
  Report Type: 
  Country: None (occurrence: None)
  Receive Date: 20040309
  Receipt Date: 20040223
  Transmission Date: 20041129
  Serious: Yes (Hospitalization)
  Sender: FDA-Public Use
  Company Number: USA040260074

PATIENT
  Age: 87 Year
  Sex: Female
  Weight: 68 kg

DRUGS (2)
  1. HUMALOG [Suspect]
     Dosage: UNK
     Route: 065
     Dates: start: 19970101
  2. HUMULIN 70/30 [Suspect]
     Dosage: 14 U/2 DAY
     Dates: start: 19970101

REACTIONS (6)
  - ASTHENIA [None]
  - BLOOD GLUCOSE FLUCTUATION [None]
  - CYSTITIS [None]
  - FEELING ABNORMAL [None]
  - MEDICATION ERROR [None]
  - PHARMACEUTICAL PRODUCT COMPLAINT [None]
